FAERS Safety Report 8142419-1 (Version None)
Quarter: 2012Q1

REPORT INFORMATION
  Report Type: 
  Country: None (occurrence: None)
  Receive Date: 20120103
  Receipt Date: 20111122
  Transmission Date: 20120608
  Serious: No
  Sender: FDA-Public Use
  Company Number: AE-2011-003909

PATIENT
  Age: 58 Year
  Sex: Female

DRUGS (7)
  1. INCIVEK [Suspect]
     Dosage: 2250 MG (750MG, 1 IN 8 HR), ORAL
     Route: 048
     Dates: start: 20110828, end: 20111119
  2. SYNTHROID [Concomitant]
  3. ESTRAZOL [Concomitant]
  4. PEGASYS [Concomitant]
  5. NEURONTIN [Concomitant]
  6. PROZAC [Concomitant]
  7. RIBAVIRIN [Concomitant]

REACTIONS (2)
  - ABDOMINAL PAIN UPPER [None]
  - RASH GENERALISED [None]
